FAERS Safety Report 12482668 (Version 1)
Quarter: 2016Q2

REPORT INFORMATION
  Report Type: Spontaneous
  Country: NO (occurrence: NO)
  Receive Date: 20160620
  Receipt Date: 20160620
  Transmission Date: 20160815
  Serious: Yes (Hospitalization)
  Sender: FDA-Public Use
  Company Number: NO-TEVA-668155ISR

PATIENT
  Age: 51 Year
  Sex: Male
  Weight: 78 kg

DRUGS (3)
  1. COPAXONE [Suspect]
     Active Substance: GLATIRAMER ACETATE
     Indication: MULTIPLE SCLEROSIS
     Dosage: 20 ML DAILY;
     Dates: start: 201602, end: 201604
  2. NEURONTIN [Concomitant]
     Active Substance: GABAPENTIN
     Indication: MULTIPLE SCLEROSIS
     Dates: start: 2003
  3. MAREVAN [Concomitant]
     Active Substance: WARFARIN SODIUM
     Indication: EMBOLISM
     Dates: start: 2015

REACTIONS (16)
  - Choking [Recovered/Resolved]
  - Erythema [Unknown]
  - Dyspnoea [Recovered/Resolved]
  - Fatigue [Recovered/Resolved]
  - Eye swelling [Recovered/Resolved]
  - Swelling face [Recovered/Resolved]
  - Application site warmth [Unknown]
  - Syncope [Recovered/Resolved]
  - Application site pain [Unknown]
  - Asthenia [Recovered/Resolved]
  - Respiratory arrest [Recovered/Resolved]
  - Ocular hyperaemia [Unknown]
  - Headache [Recovered/Resolved]
  - Chest pain [Recovered/Resolved]
  - Burning sensation [Recovered/Resolved]
  - Pallor [Unknown]

NARRATIVE: CASE EVENT DATE: 201604
